FAERS Safety Report 25786044 (Version 3)
Quarter: 2025Q3

REPORT INFORMATION
  Report Type: Spontaneous
  Country: AR (occurrence: AR)
  Receive Date: 20250910
  Receipt Date: 20250917
  Transmission Date: 20251020
  Serious: No
  Sender: PFIZER
  Company Number: AR-PFIZER INC-202500176752

PATIENT
  Age: 10 Year
  Sex: Female

DRUGS (1)
  1. GENOTROPIN [Suspect]
     Active Substance: SOMATROPIN
     Indication: Short stature
     Dosage: 1.4 MG, 1X/DAY
     Dates: start: 20220218, end: 20250903

REACTIONS (2)
  - Drug dose omission by device [Not Recovered/Not Resolved]
  - Device mechanical issue [Not Recovered/Not Resolved]

NARRATIVE: CASE EVENT DATE: 20250903
